FAERS Safety Report 4986350-9 (Version None)
Quarter: 2006Q2

REPORT INFORMATION
  Report Type: 
  Country: None (occurrence: None)
  Receive Date: 20060428
  Receipt Date: 20060426
  Transmission Date: 20061013
  Serious: Yes (Other)
  Sender: FDA-Public Use
  Company Number: US-GLAXOSMITHKLINE-A0603388A

PATIENT
  Age: 65 Year
  Sex: Female

DRUGS (1)
  1. ZANTAC [Suspect]
     Route: 042

REACTIONS (4)
  - ALOPECIA [None]
  - HALLUCINATION [None]
  - VISION BLURRED [None]
  - VISUAL ACUITY REDUCED [None]
